FAERS Safety Report 5409697-0 (Version None)
Quarter: 2007Q3

REPORT INFORMATION
  Report Type: 
  Country: None (occurrence: None)
  Receive Date: 20070809
  Receipt Date: 20070806
  Transmission Date: 20080115
  Serious: Yes (Hospitalization)
  Sender: FDA-Public Use
  Company Number: KE-GILEAD-2007-0012751

PATIENT
  Age: 41 Year
  Sex: Female
  Weight: 60.7 kg

DRUGS (5)
  1. EMTRICITABINE/TENOFOVIR DISOPROXIL FUMARATE [Suspect]
     Indication: HIV INFECTION
     Route: 048
     Dates: start: 20061006
  2. KALETRA [Suspect]
     Indication: HIV INFECTION
     Route: 048
     Dates: start: 20061006
  3. SEPTRIN DS [Concomitant]
  4. VITACAP [Concomitant]
  5. VITACAP [Concomitant]

REACTIONS (1)
  - LOBAR PNEUMONIA [None]
